FAERS Safety Report 10332240 (Version 2)
Quarter: 2014Q3

REPORT INFORMATION
  Report Type: Report from Study
  Country: BE (occurrence: BE)
  Receive Date: 20140722
  Receipt Date: 20140810
  Transmission Date: 20150326
  Serious: Yes (Death, Hospitalization)
  Sender: FDA-Public Use
  Company Number: BE-BRISTOL-MYERS SQUIBB COMPANY-21211693

PATIENT
  Age: 83 Year
  Sex: Female
  Weight: 50 kg

DRUGS (9)
  1. IRINOTECAN [Suspect]
     Active Substance: IRINOTECAN
     Indication: COLORECTAL CANCER METASTATIC
     Route: 042
     Dates: start: 20121203, end: 20130128
  2. 5-FLUOROURACIL [Suspect]
     Active Substance: FLUOROURACIL
     Indication: COLORECTAL CANCER METASTATIC
     Route: 042
     Dates: start: 20121203, end: 20130128
  3. ELVORINE [Suspect]
     Active Substance: LEUCOVORIN CALCIUM
     Indication: COLORECTAL CANCER METASTATIC
     Route: 042
     Dates: start: 20121203, end: 20130128
  4. URFADYN [Concomitant]
     Active Substance: NIFURTOINOL
     Indication: CYSTITIS
  5. PROPIVERINE HCL [Concomitant]
     Indication: INCONTINENCE
     Dosage: MICTONORM
  6. SOTALOL. [Concomitant]
     Active Substance: SOTALOL
     Indication: HYPERTENSION
  7. ERBITUX [Suspect]
     Active Substance: CETUXIMAB
     Indication: COLORECTAL CANCER METASTATIC
     Route: 042
     Dates: start: 20121203, end: 20130128
  8. XALATAN [Concomitant]
     Active Substance: LATANOPROST
     Indication: DRY EYE
  9. ZOLPIDEM [Concomitant]
     Active Substance: ZOLPIDEM\ZOLPIDEM TARTRATE
     Indication: INSOMNIA

REACTIONS (1)
  - Gastrointestinal toxicity [Fatal]

NARRATIVE: CASE EVENT DATE: 20130128
